FAERS Safety Report 7427726-X (Version None)
Quarter: 2011Q1

REPORT INFORMATION
  Report Type: 
  Country: None (occurrence: None)
  Receive Date: 20110302
  Receipt Date: 20110107
  Transmission Date: 20110831
  Serious: No
  Sender: FDA-Public Use
  Company Number: 025125

PATIENT
  Sex: Male
  Weight: 58.5 kg

DRUGS (1)
  1. CIMZIA [Suspect]
     Indication: CROHN'S DISEASE
     Dosage: 2 SHOTS MONTHLY SUBCUTANEOUS
     Route: 058
     Dates: start: 20100101

REACTIONS (4)
  - ABDOMINAL PAIN UPPER [None]
  - VOMITING [None]
  - WEIGHT DECREASED [None]
  - DIARRHOEA [None]
